FAERS Safety Report 15256870 (Version 3)
Quarter: 2018Q3

REPORT INFORMATION
  Report Type: Report from Study
  Country: DE (occurrence: DE)
  Receive Date: 20180808
  Receipt Date: 20180824
  Transmission Date: 20181010
  Serious: Yes (Hospitalization)
  Sender: FDA-Public Use
  Company Number: DE-AMGEN-DEUCT2018107216

PATIENT
  Age: 8 Year
  Sex: Male
  Weight: 17.3 kg

DRUGS (5)
  1. NUROFEN [Concomitant]
     Active Substance: IBUPROFEN
     Dosage: 3.75 ML, UNK
     Route: 048
     Dates: start: 20180721, end: 20180722
  2. PARACETAMOL [Concomitant]
     Active Substance: ACETAMINOPHEN
     Dosage: 250 MG, UNK
     Route: 048
     Dates: start: 20180721, end: 20180722
  3. DENOSUMAB [Suspect]
     Active Substance: DENOSUMAB
     Indication: OSTEOGENESIS IMPERFECTA
     Dosage: 0.25 ML, Q6MO
     Route: 058
     Dates: start: 20171012
  4. CALCIUM [Concomitant]
     Active Substance: CALCIUM
     Dosage: 500 MG, UNK
     Route: 048
     Dates: start: 20180404, end: 20180706
  5. VITAMIN D [Concomitant]
     Active Substance: CHOLECALCIFEROL
     Dosage: 1000 IU, UNK
     Route: 048
     Dates: start: 20171012

REACTIONS (1)
  - Right ventricular dilatation [Recovered/Resolved]

NARRATIVE: CASE EVENT DATE: 20180725
